FAERS Safety Report 5927042-9 (Version None)
Quarter: 2008Q4

REPORT INFORMATION
  Report Type: 
  Country: None (occurrence: None)
  Receive Date: 20081022
  Receipt Date: 20081013
  Transmission Date: 20090506
  Serious: Yes (Hospitalization)
  Sender: FDA-Public Use
  Company Number: PHHY2008DE24258

PATIENT
  Age: 14 Year
  Sex: Female
  Weight: 37.7 kg

DRUGS (3)
  1. EXJADE [Suspect]
     Indication: THALASSAEMIA BETA
     Dosage: 500 MG, QD
     Route: 048
  2. CLODRONIC ACID [Concomitant]
     Dosage: 400 MG / DAY
     Route: 065
  3. HUMATROPE [Concomitant]
     Dosage: 6 IU, QD
     Route: 065

REACTIONS (25)
  - ANAEMIA [None]
  - ANGIODYSPLASIA [None]
  - BILIRUBIN CONJUGATED INCREASED [None]
  - BLOOD BILIRUBIN INCREASED [None]
  - DUODENAL ULCER [None]
  - DUODENITIS [None]
  - DYSPNOEA [None]
  - FIBROMATOSIS [None]
  - GASTRITIS HAEMORRHAGIC [None]
  - GASTROINTESTINAL HAEMORRHAGE [None]
  - GENERAL PHYSICAL HEALTH DETERIORATION [None]
  - HAEMATEMESIS [None]
  - HAEMATOCHEZIA [None]
  - HAEMATOCRIT DECREASED [None]
  - HAEMOGLOBIN DECREASED [None]
  - HELICOBACTER PYLORI IDENTIFICATION TEST POSITIVE [None]
  - MELAENA [None]
  - NAUSEA [None]
  - NUTRITIONAL CONDITION ABNORMAL [None]
  - OESOPHAGOGASTRODUODENOSCOPY [None]
  - PALLOR [None]
  - PHARYNGEAL ERYTHEMA [None]
  - SPLENOMEGALY [None]
  - TREMOR [None]
  - ULTRASOUND ABDOMEN ABNORMAL [None]
